FAERS Safety Report 22288677 (Version 1)
Quarter: 2023Q2

REPORT INFORMATION
  Report Type: Spontaneous
  Country: US (occurrence: US)
  Receive Date: 20230505
  Receipt Date: 20230505
  Transmission Date: 20230722
  Serious: No
  Sender: FDA-Public Use
  Company Number: US-ARIS GLOBAL-37612

PATIENT
  Age: 41 Year
  Sex: Male

DRUGS (1)
  1. RIBOFLAVIN 5^-PHOSPHATE SODIUM [Suspect]
     Active Substance: RIBOFLAVIN 5^-PHOSPHATE SODIUM
     Indication: Corneal disorder
     Route: 047
     Dates: start: 2017, end: 2017

REACTIONS (1)
  - Corneal opacity [Unknown]
